FAERS Safety Report 6508736-3 (Version None)
Quarter: 2009Q4

REPORT INFORMATION
  Report Type: 
  Country: None (occurrence: None)
  Receive Date: 20091221
  Receipt Date: 20090723
  Transmission Date: 20100525
  Serious: No
  Sender: FDA-Public Use
  Company Number: US-ASTRAZENECA-2009SE06015

PATIENT
  Age: 79 Year
  Sex: Female
  Weight: 102.5 kg

DRUGS (2)
  1. CRESTOR [Suspect]
     Route: 048
  2. BENICAR [Concomitant]
     Indication: HYPOTENSION

REACTIONS (1)
  - DIARRHOEA [None]
